FAERS Safety Report 8809327 (Version 2)
Quarter: 2012Q4

REPORT INFORMATION
  Report Type: 
  Country: US (occurrence: US)
  Receive Date: 20120926
  Receipt Date: 20121012
  Transmission Date: 20130627
  Serious: Yes (Hospitalization, Other)
  Sender: FDA-Public Use
  Company Number: US-PFIZER INC-2012236555

PATIENT
  Age: 81 Year
  Sex: Female
  Weight: 86.17 kg

DRUGS (15)
  1. LYRICA [Suspect]
     Indication: FIBROMYALGIA
     Dosage: 75 mg, 4x/day
     Dates: start: 2012
  2. LYRICA [Suspect]
     Indication: NEUROPATHY PERIPHERAL
  3. NEURONTIN [Suspect]
     Indication: NEUROPATHY PERIPHERAL
     Dosage: 400 mg, 9x/day
  4. NEURONTIN [Suspect]
     Dosage: 400 mg, 4x/day
     Dates: end: 2012
  5. ESOMEPRAZOLE MAGNESIUM [Suspect]
     Indication: GASTROOESOPHAGEAL REFLUX DISEASE
     Dosage: 40 mg, daily
  6. PREDNISONE [Suspect]
     Indication: INTESTINAL OBSTRUCTION
     Dosage: UNK
     Dates: start: 2011
  7. PENTASA [Concomitant]
     Indication: CROHN^S DISEASE
     Dosage: 500 mg, 8x/day
  8. PENTASA [Concomitant]
     Indication: PANCREATITIS
  9. CYMBALTA [Concomitant]
     Indication: NEUROPATHY PERIPHERAL
     Dosage: 60 mg, daily
  10. AMITRIPTYLINE [Concomitant]
     Indication: NEUROPATHY PERIPHERAL
     Dosage: 50 mg, 2x/day
  11. TRICOR [Concomitant]
     Indication: GLUCOSE TOLERANCE IMPAIRED
     Dosage: 145 mg, daily
  12. FOLIC ACID [Concomitant]
     Dosage: 1 mg, daily
  13. VITAMIN D2 [Concomitant]
     Dosage: 50000 IU, daily
  14. VITAMIN C [Concomitant]
     Indication: MICTURITION DISORDER
     Dosage: 4200 mg, 2x/day
  15. ZOLPIDEM [Concomitant]
     Dosage: UNK

REACTIONS (6)
  - Intestinal obstruction [Unknown]
  - Pain [Not Recovered/Not Resolved]
  - Weight increased [Unknown]
  - Rash [Not Recovered/Not Resolved]
  - Drug ineffective [Unknown]
  - Increased tendency to bruise [Not Recovered/Not Resolved]
